FAERS Safety Report 8974701 (Version 1)
Quarter: 2012Q4

REPORT INFORMATION
  Report Type: Spontaneous
  Country: US (occurrence: None)
  Receive Date: 20121212
  Receipt Date: 20121212
  Transmission Date: 20130627
  Serious: Yes (Hospitalization, Other)
  Sender: FDA-Public Use
  Company Number: 142849

PATIENT
  Age: 8 Year
  Sex: Male

DRUGS (2)
  1. ONDANSETRON [Suspect]
     Route: 048
  2. ONDANSETRON [Suspect]

REACTIONS (4)
  - Medication error [None]
  - Intentional overdose [None]
  - Hypotension [None]
  - Vomiting [None]
